FAERS Safety Report 13553102 (Version 1)
Quarter: 2017Q2

REPORT INFORMATION
  Report Type: Spontaneous
  Country: US (occurrence: US)
  Receive Date: 20170516
  Receipt Date: 20170516
  Transmission Date: 20170830
  Serious: Yes (Disabling, Other)
  Sender: FDA-Public Use
  Company Number: None

PATIENT
  Age: 63 Year
  Sex: Female
  Weight: 112.5 kg

DRUGS (6)
  1. MAGNESIUM [Concomitant]
     Active Substance: MAGNESIUM
  2. NAC [Concomitant]
  3. PHENTERMINE. [Concomitant]
     Active Substance: PHENTERMINE
  4. MULTI [Concomitant]
  5. LEVOFLOXIN 750 [Suspect]
     Active Substance: LEVOFLOXACIN
     Indication: SINUSITIS
     Route: 048
     Dates: start: 20160515, end: 20160809
  6. PRO-BIOTIC [Concomitant]

REACTIONS (5)
  - Insomnia [None]
  - Tendon disorder [None]
  - Abasia [None]
  - Pain [None]
  - Palpitations [None]

NARRATIVE: CASE EVENT DATE: 20160809
